FAERS Safety Report 8017363-0 (Version None)
Quarter: 2012Q1

REPORT INFORMATION
  Report Type: 
  Country: None (occurrence: None)
  Receive Date: 20120102
  Receipt Date: 20111222
  Transmission Date: 20120608
  Serious: Yes (Other)
  Sender: FDA-Public Use
  Company Number: FR-ROCHE-GNE280723

PATIENT
  Sex: Female

DRUGS (2)
  1. XOLAIR [Suspect]
     Dosage: DOSE INCREASED
     Dates: start: 20111221
  2. XOLAIR [Suspect]
     Indication: ASTHMA
     Dosage: UNK
     Route: 058

REACTIONS (2)
  - ASTHMA [None]
  - AUTOIMMUNE THYROIDITIS [None]
